FAERS Safety Report 6149163-0 (Version None)
Quarter: 2009Q2

REPORT INFORMATION
  Report Type: 
  Country: None (occurrence: None)
  Receive Date: 20090409
  Receipt Date: 20090407
  Transmission Date: 20091009
  Serious: Yes (Other)
  Sender: FDA-Public Use
  Company Number: GB-BRISTOL-MYERS SQUIBB COMPANY-14577597

PATIENT
  Age: 37 Year
  Sex: Male

DRUGS (3)
  1. ARIPIPRAZOLE [Suspect]
     Indication: HALLUCINATION, AUDITORY
     Route: 048
     Dates: start: 20080801, end: 20081105
  2. MIRTAZAPINE [Concomitant]
     Indication: ANXIETY
     Route: 048
     Dates: start: 20071201
  3. MIRTAZAPINE [Concomitant]
     Indication: DEPRESSION
     Route: 048
     Dates: start: 20071201

REACTIONS (3)
  - AGITATION [None]
  - ANXIETY [None]
  - HALLUCINATION, AUDITORY [None]
